FAERS Safety Report 6180011-9 (Version None)
Quarter: 2009Q2

REPORT INFORMATION
  Report Type: 
  Country: None (occurrence: None)
  Receive Date: 20090505
  Receipt Date: 20090505
  Transmission Date: 20091009
  Serious: Yes (Death)
  Sender: FDA-Public Use
  Company Number: US-ROXANE LABORATORIES, INC.-2009-RO-00376RO

PATIENT
  Sex: Male
  Weight: 138 kg

DRUGS (26)
  1. FUROSEMIDE [Suspect]
     Indication: FLUID RETENTION
     Dosage: 40MG
  2. FUROSEMIDE [Suspect]
     Indication: MUSCLE SPASMS
  3. DIGOXIN [Suspect]
     Dosage: .25MG
  4. ALBUTEROL [Suspect]
     Dosage: 8MG
  5. AZITHROMYCIN [Suspect]
  6. CYANOCOBALAMIN [Suspect]
  7. EPOETIN [Suspect]
  8. SIMVASTATIN [Suspect]
     Dosage: 40MG
  9. WARFARIN [Suspect]
     Dosage: 2MG
  10. POTASSIUM CHLORIDE [Suspect]
     Dosage: 10MG
  11. WHOLE BLOOD [Concomitant]
     Dates: start: 20060728
  12. WHOLE BLOOD [Concomitant]
     Dates: start: 20060901
  13. WHOLE BLOOD [Concomitant]
     Dates: start: 20061013
  14. PLATELETS [Concomitant]
  15. GLOBULIN [Concomitant]
  16. MICAFUNGIN [Concomitant]
  17. CEFEPIME [Concomitant]
  18. LINEZOLID [Concomitant]
  19. CLINIMIX [Concomitant]
  20. LYTE [Concomitant]
  21. CUBICIN [Concomitant]
  22. NUPERGIN [Concomitant]
  23. PROTONIX [Concomitant]
  24. DIPRIVAN [Concomitant]
  25. PIPERACILLIN [Concomitant]
  26. NOREPINEPHRINE [Concomitant]

REACTIONS (1)
  - SEPSIS [None]
